FAERS Safety Report 11981660 (Version 1)
Quarter: 2016Q1

REPORT INFORMATION
  Report Type: Spontaneous
  Country: GB (occurrence: GB)
  Receive Date: 20160131
  Receipt Date: 20160131
  Transmission Date: 20160526
  Serious: Yes (Disabling)
  Sender: FDA-Public Use
  Company Number: GB-TEVA-627571ACC

PATIENT
  Age: 26 Year
  Sex: Female
  Weight: 61.68 kg

DRUGS (1)
  1. METFORMIN [Suspect]
     Active Substance: METFORMIN HYDROCHLORIDE
     Indication: INFERTILITY FEMALE
     Dosage: 1 X 500MG X2 WEEKS, 2 X 500MG X2 WEEKS, 3 X 500MG ONGOING
     Route: 048
     Dates: start: 20151208

REACTIONS (5)
  - Gait disturbance [Unknown]
  - Disturbance in attention [Unknown]
  - Dyspnoea [Unknown]
  - Insomnia [Unknown]
  - Dyspepsia [Not Recovered/Not Resolved]

NARRATIVE: CASE EVENT DATE: 20151208
